FAERS Safety Report 8420903-0 (Version None)
Quarter: 2012Q2

REPORT INFORMATION
  Report Type: 
  Country: None (occurrence: None)
  Receive Date: 20120608
  Receipt Date: 20120604
  Transmission Date: 20120825
  Serious: Yes (Other)
  Sender: FDA-Public Use
  Company Number: VE-PFIZER INC-2012128147

PATIENT
  Age: 71 Year
  Sex: Female

DRUGS (2)
  1. LYRICA [Suspect]
     Indication: CEREBROVASCULAR ACCIDENT
     Dosage: 150 MG, 1X/DAY
     Route: 048
     Dates: start: 20110101
  2. LIPITOR [Suspect]
     Indication: CEREBROVASCULAR ACCIDENT
     Dosage: 40 MG, 1X/DAY
     Route: 048
     Dates: start: 20110101

REACTIONS (1)
  - MYOCARDIAL INFARCTION [None]
